FAERS Safety Report 21712903 (Version 1)
Quarter: 2022Q4

REPORT INFORMATION
  Report Type: Spontaneous
  Country: US (occurrence: US)
  Receive Date: 20221212
  Receipt Date: 20221212
  Transmission Date: 20230113
  Serious: No
  Sender: FDA-Public Use
  Company Number: US-SA-SAC20221208001133

PATIENT
  Age: 8 Year
  Sex: Male

DRUGS (1)
  1. ELOCTATE [Suspect]
     Active Substance: EFMOROCTOCOG ALFA
     Dosage: 965 U
     Route: 065

REACTIONS (2)
  - Joint injury [Unknown]
  - Swelling [Unknown]

NARRATIVE: CASE EVENT DATE: 20221201
